APPROVED DRUG PRODUCT: TOPOTECAN HYDROCHLORIDE
Active Ingredient: TOPOTECAN HYDROCHLORIDE
Strength: EQ 4MG BASE/4ML (EQ 1MG BASE/ML)
Dosage Form/Route: SOLUTION;INTRAVENOUS
Application: N022453 | Product #001
Applicant: MEITHEAL PHARMACEUTICALS INC
Approved: Dec 20, 2012 | RLD: No | RS: No | Type: DISCN